FAERS Safety Report 4812571-1 (Version None)
Quarter: 2005Q4

REPORT INFORMATION
  Report Type: 
  Country: None (occurrence: None)
  Receive Date: 20051028
  Receipt Date: 20041101
  Transmission Date: 20060501
  Serious: No
  Sender: FDA-Public Use
  Company Number: US-GLAXOSMITHKLINE-A0532024A

PATIENT
  Age: 55 Year
  Sex: Female

DRUGS (13)
  1. ADVAIR DISKUS 100/50 [Suspect]
     Indication: ASTHMA
     Dosage: 1PUFF TWICE PER DAY
     Route: 055
     Dates: start: 20020101
  2. ALBUTEROL [Concomitant]
  3. AMARYL [Concomitant]
  4. MOBIC [Concomitant]
  5. NEURONTIN [Concomitant]
  6. AVANDAMET [Concomitant]
  7. DETROL [Concomitant]
  8. FOSINOPRIL [Concomitant]
  9. PROZAC [Concomitant]
  10. HYDROCODONE [Concomitant]
  11. CYCLOBENZAPRINE HCL [Concomitant]
  12. CALCIUM MAGNESIUM [Concomitant]
  13. POTASSIUM GLUCONATE TAB [Concomitant]

REACTIONS (1)
  - COUGH [None]
